FAERS Safety Report 5147906-6 (Version None)
Quarter: 2006Q4

REPORT INFORMATION
  Report Type: 
  Country: None (occurrence: None)
  Receive Date: 20061106
  Receipt Date: 20061024
  Transmission Date: 20070319
  Serious: Yes (Hospitalization, Other)
  Sender: FDA-Public Use
  Company Number: 2006116902

PATIENT
  Age: 92 Year
  Sex: Female

DRUGS (12)
  1. LYRICA [Suspect]
     Indication: HERPES ZOSTER
     Dosage: 150 MG (50 MG, 3 IN 1 D)
     Dates: start: 20060920, end: 20060901
  2. DARVOCET-N 100 [Concomitant]
  3. VALTREX [Concomitant]
  4. ALL OTHER THERAPEUTIC PRODUCTS [Concomitant]
  5. PAXIL [Concomitant]
  6. LASIX [Concomitant]
  7. ACCUPRIL [Concomitant]
  8. ACETYLSALICYLIC ACID SRT [Concomitant]
  9. CALCIUM [Concomitant]
  10. TRILISATE (CHOLINE SALICYLATE, MAGNESIUM SALICYLATE) [Concomitant]
  11. PRILOSEC [Concomitant]
  12. SYNTHROID [Concomitant]

REACTIONS (14)
  - ALANINE AMINOTRANSFERASE INCREASED [None]
  - BLOOD CREATINE INCREASED [None]
  - BLOOD GLUCOSE INCREASED [None]
  - BLOOD UREA INCREASED [None]
  - BUNDLE BRANCH BLOCK RIGHT [None]
  - CONFUSIONAL STATE [None]
  - DRUG TOXICITY [None]
  - ELECTROCARDIOGRAM ST-T CHANGE [None]
  - HYPOACUSIS [None]
  - HYPOREFLEXIA [None]
  - SOMNOLENCE [None]
  - SPEECH DISORDER [None]
  - STUPOR [None]
  - VISUAL ACUITY REDUCED [None]
